FAERS Safety Report 5254749-1 (Version None)
Quarter: 2007Q1

REPORT INFORMATION
  Report Type: 
  Country: None (occurrence: None)
  Receive Date: 20070228
  Receipt Date: 20070215
  Transmission Date: 20070707
  Serious: Yes (Other)
  Sender: FDA-Public Use
  Company Number: 2007SP003040

PATIENT
  Age: 45 Year
  Sex: Male

DRUGS (2)
  1. PEG-INTRON [Suspect]
     Indication: HEPATITIS C
     Dosage: SC
     Route: 058
     Dates: start: 20070128
  2. REBETOL [Suspect]
     Indication: HEPATITIS C
     Dosage: PO
     Route: 048
     Dates: start: 20070128

REACTIONS (6)
  - ABDOMINAL PAIN [None]
  - ABNORMAL FAECES [None]
  - ARTHRALGIA [None]
  - FAECES DISCOLOURED [None]
  - HAEMATOCHEZIA [None]
  - KIDNEY INFECTION [None]
